FAERS Safety Report 16251929 (Version 2)
Quarter: 2019Q2

REPORT INFORMATION
  Report Type: Spontaneous
  Country: JP (occurrence: JP)
  Receive Date: 20190429
  Receipt Date: 20190607
  Transmission Date: 20190711
  Serious: Yes (Hospitalization, Other)
  Sender: FDA-Public Use
  Company Number: JP-JNJFOC-20190439835

PATIENT
  Age: 72 Year
  Sex: Male

DRUGS (5)
  1. CLARITH [Concomitant]
     Active Substance: CLARITHROMYCIN
     Indication: LUNG DISORDER
     Route: 048
  2. PREDNISOLONE. [Concomitant]
     Active Substance: PREDNISOLONE
     Route: 065
  3. SIMPONI [Suspect]
     Active Substance: GOLIMUMAB
     Indication: RHEUMATOID ARTHRITIS
     Route: 058
     Dates: start: 20151127
  4. SIMPONI [Suspect]
     Active Substance: GOLIMUMAB
     Indication: RHEUMATOID ARTHRITIS
     Route: 058
  5. PROGRAF [Concomitant]
     Active Substance: TACROLIMUS\TACROLIMUS ANHYDROUS
     Route: 065

REACTIONS (9)
  - Hyponatraemia [Unknown]
  - Cellulitis [Recovering/Resolving]
  - Dermatophytosis of nail [Unknown]
  - Off label use [Unknown]
  - Tinea pedis [Unknown]
  - Incorrect dose administered [Unknown]
  - Diarrhoea [Unknown]
  - Infection [Recovering/Resolving]
  - Lung infection [Unknown]

NARRATIVE: CASE EVENT DATE: 20190125
